FAERS Safety Report 8400038-3 (Version None)
Quarter: 2012Q2

REPORT INFORMATION
  Report Type: 
  Country: None (occurrence: None)
  Receive Date: 20120525
  Receipt Date: 20120510
  Transmission Date: 20120825
  Serious: Yes (Other)
  Sender: FDA-Public Use
  Company Number: 2012AP001409

PATIENT
  Age: 36 Year
  Sex: Female

DRUGS (6)
  1. OMEPRAZOLE [Suspect]
  2. ABACAVIR SULFATE AND LAMIVUDINE [Suspect]
  3. KALETRA [Suspect]
  4. FOLIC ACID [Concomitant]
  5. NEVIRAPINE [Suspect]
  6. REYATAZ [Suspect]

REACTIONS (3)
  - PREGNANCY [None]
  - MATERNAL EXPOSURE DURING PREGNANCY [None]
  - VIRAL LOAD INCREASED [None]
